FAERS Safety Report 7621228-3 (Version None)
Quarter: 2011Q3

REPORT INFORMATION
  Report Type: 
  Country: None (occurrence: None)
  Receive Date: 20110719
  Receipt Date: 20110713
  Transmission Date: 20111222
  Serious: Yes (Hospitalization)
  Sender: FDA-Public Use
  Company Number: US-BAXTER-2011BH018459

PATIENT
  Age: 73 Year
  Sex: Male
  Weight: 118 kg

DRUGS (6)
  1. NEURONTIN [Concomitant]
     Indication: PRODUCT USED FOR UNKNOWN INDICATION
     Route: 048
  2. GAMMAGARD LIQUID [Suspect]
     Indication: OFF LABEL USE
     Route: 042
     Dates: start: 20110517, end: 20110517
  3. AMLODIPINE [Concomitant]
     Indication: PRODUCT USED FOR UNKNOWN INDICATION
     Route: 048
  4. GAMMAGARD LIQUID [Suspect]
     Indication: DEMYELINATING POLYNEUROPATHY
     Route: 042
     Dates: start: 20110517, end: 20110517
  5. GAMMAGARD LIQUID [Suspect]
     Route: 042
     Dates: start: 20110517, end: 20110517
  6. GAMMAGARD LIQUID [Suspect]
     Route: 042
     Dates: start: 20110517, end: 20110517

REACTIONS (5)
  - CHILLS [None]
  - PNEUMONIA [None]
  - DYSPNOEA [None]
  - ASTHENIA [None]
  - PYREXIA [None]
